FAERS Safety Report 21295441 (Version 2)
Quarter: 2022Q4

REPORT INFORMATION
  Report Type: Other
  Country: US (occurrence: US)
  Receive Date: 20220905
  Receipt Date: 20221011
  Transmission Date: 20230113
  Serious: Yes (Hospitalization, Other)
  Sender: FDA-Public Use
  Company Number: US-GBT-015747

PATIENT
  Age: 32 Year
  Sex: Female

DRUGS (1)
  1. OXBRYTA [Suspect]
     Active Substance: VOXELOTOR
     Indication: Sickle cell disease
     Dosage: TABLET STRENGTH 500MG
     Route: 065
     Dates: start: 2021

REACTIONS (7)
  - Sickle cell anaemia with crisis [Recovered/Resolved]
  - Loss of consciousness [Unknown]
  - Multiple drug therapy [Unknown]
  - Therapy cessation [Unknown]
  - Haemoglobin decreased [Unknown]
  - Treatment noncompliance [Unknown]
  - Anxiety [Unknown]

NARRATIVE: CASE EVENT DATE: 20211027
